FAERS Safety Report 5124084-0 (Version None)
Quarter: 2006Q4

REPORT INFORMATION
  Report Type: 
  Country: None (occurrence: None)
  Receive Date: 20061010
  Receipt Date: 20051121
  Transmission Date: 20070319
  Serious: Yes (Other)
  Sender: FDA-Public Use
  Company Number: US-BRISTOL-MYERS SQUIBB COMPANY-13188834

PATIENT
  Age: 81 Year
  Sex: Male
  Weight: 68 kg

DRUGS (5)
  1. AVAPRO [Suspect]
     Indication: HYPERTENSION
  2. ATENOLOL [Concomitant]
  3. HYTRIN [Concomitant]
  4. MACUGEN [Concomitant]
     Dosage: RECENTLY RECEIVED INJECTION
  5. NAPROXEN [Concomitant]

REACTIONS (1)
  - ANGIONEUROTIC OEDEMA [None]
